FAERS Safety Report 4762983-X (Version None)
Quarter: 2005Q3

REPORT INFORMATION
  Report Type: 
  Country: None (occurrence: None)
  Receive Date: 20050907
  Receipt Date: 20041112
  Transmission Date: 20060218
  Serious: Yes (Hospitalization)
  Sender: FDA-Public Use
  Company Number: DE-MERCK-0411DEU00417

PATIENT
  Age: 79 Year
  Sex: Female

DRUGS (9)
  1. VIOXX [Suspect]
     Route: 048
     Dates: start: 20020701, end: 20040901
  2. LEVOTHYROXINE SODIUM [Concomitant]
     Indication: HYPOTHYROIDISM
     Route: 048
  3. BETAHISTINE HYDROCHLORIDE [Concomitant]
     Indication: DIZZINESS
     Route: 048
  4. VASOTEC RPD [Concomitant]
     Indication: HYPERTENSION
     Route: 048
  5. MEBEVERINE HYDROCHLORIDE [Concomitant]
     Indication: DIVERTICULUM
     Route: 048
  6. CHOLECALCIFEROL [Concomitant]
     Indication: OSTEOPOROSIS
     Route: 048
  7. PHENPROCOUMON [Suspect]
     Indication: PULMONARY EMBOLISM
     Route: 048
     Dates: start: 19990101, end: 20040101
  8. PHENPROCOUMON [Suspect]
     Indication: DEEP VEIN THROMBOSIS
     Route: 048
     Dates: start: 19990101, end: 20040101
  9. DILTIAZEM HYDROCHLORIDE [Concomitant]
     Indication: CORONARY ARTERY DISEASE
     Route: 048

REACTIONS (3)
  - EPISTAXIS [None]
  - HAEMORRHAGE [None]
  - VENOUS THROMBOSIS LIMB [None]
